FAERS Safety Report 5500068-5 (Version None)
Quarter: 2007Q4

REPORT INFORMATION
  Report Type: 
  Country: None (occurrence: None)
  Receive Date: 20071024
  Receipt Date: 20071010
  Transmission Date: 20080405
  Serious: Yes (Other)
  Sender: FDA-Public Use
  Company Number: CHPA2007CA09869

PATIENT
  Sex: Male
  Weight: 61.2 kg

DRUGS (2)
  1. BUCKLEY'S COUGH + COLD (NCH)(PSEUDOEPHEDRINE HYDROCHLORIDE, DEXTROMETH [Suspect]
     Indication: NASOPHARYNGITIS
     Dosage: ONCE/SINGLE, ORAL; 9 TSP, TID, ORAL
     Route: 048
     Dates: start: 20070916, end: 20070916
  2. BUCKLEY'S COUGH + COLD (NCH)(PSEUDOEPHEDRINE HYDROCHLORIDE, DEXTROMETH [Suspect]
     Indication: NASOPHARYNGITIS
     Dosage: ONCE/SINGLE, ORAL; 9 TSP, TID, ORAL
     Route: 048
     Dates: start: 20070916

REACTIONS (8)
  - ASTHENIA [None]
  - CHLOROPSIA [None]
  - FATIGUE [None]
  - HICCUPS [None]
  - OVERDOSE [None]
  - SEROTONIN SYNDROME [None]
  - VISUAL ACUITY REDUCED [None]
  - WRONG TECHNIQUE IN DRUG USAGE PROCESS [None]
